FAERS Safety Report 6523346-X (Version None)
Quarter: 2009Q4

REPORT INFORMATION
  Report Type: 
  Country: None (occurrence: None)
  Receive Date: 20091231
  Receipt Date: 20091223
  Transmission Date: 20100525
  Serious: Yes (Death, Hospitalization)
  Sender: FDA-Public Use
  Company Number: US-ROCHE-675720

PATIENT
  Sex: Male

DRUGS (4)
  1. XELODA [Suspect]
     Route: 048
     Dates: start: 20091203, end: 20091208
  2. CARBOPLATIN [Suspect]
     Dosage: ROUTE:  IVPB
     Route: 065
     Dates: start: 20091203
  3. PRILOSEC [Concomitant]
     Route: 048
  4. LISINOPRIL [Concomitant]
     Dosage: FREQUENCY: DAILY
     Route: 048

REACTIONS (6)
  - ABDOMINAL PAIN [None]
  - CARDIOPULMONARY FAILURE [None]
  - DEATH [None]
  - DEHYDRATION [None]
  - OESOPHAGEAL CANCER METASTATIC [None]
  - VISUAL IMPAIRMENT [None]
